FAERS Safety Report 4764479-8 (Version None)
Quarter: 2005Q3

REPORT INFORMATION
  Report Type: 
  Country: None (occurrence: None)
  Receive Date: 20050907
  Receipt Date: 20050826
  Transmission Date: 20060218
  Serious: Yes (Life-Threatening, Other)
  Sender: FDA-Public Use
  Company Number: 2005094719

PATIENT
  Age: 51 Year
  Sex: Female

DRUGS (4)
  1. AROMASIN [Suspect]
     Indication: BREAST CANCER
     Dosage: 25 MG (25 MG, QD), ORAL
     Route: 048
     Dates: start: 20041126, end: 20050614
  2. NORVASC [Concomitant]
  3. DIOVANE (VALSARTAN) [Concomitant]
  4. URSODIOL [Concomitant]

REACTIONS (1)
  - POLYCYTHAEMIA [None]
